FAERS Safety Report 11783557 (Version 1)
Quarter: 2015Q4

REPORT INFORMATION
  Report Type: Spontaneous
  Country: IT (occurrence: IT)
  Receive Date: 20151127
  Receipt Date: 20151127
  Transmission Date: 20160305
  Serious: Yes (Disabling)
  Sender: FDA-Public Use
  Company Number: IT-BRISTOL-MYERS SQUIBB COMPANY-BMS-2015-080334

PATIENT
  Age: 45 Year
  Sex: Male

DRUGS (1)
  1. YERVOY [Suspect]
     Active Substance: IPILIMUMAB
     Indication: MALIGNANT MELANOMA
     Dosage: 4 DF, UNK
     Route: 065
     Dates: start: 201505, end: 201507

REACTIONS (2)
  - Scan bone marrow abnormal [Unknown]
  - Muscle disorder [Unknown]

NARRATIVE: CASE EVENT DATE: 201511
